FAERS Safety Report 7285339-7 (Version None)
Quarter: 2011Q1

REPORT INFORMATION
  Report Type: 
  Country: None (occurrence: None)
  Receive Date: 20110121
  Receipt Date: 20100426
  Transmission Date: 20110831
  Serious: No
  Sender: FDA-Public Use
  Company Number: AE 2010-056

PATIENT
  Sex: Male

DRUGS (12)
  1. ADVAIR [Concomitant]
  2. PHENTERMINE [Concomitant]
  3. ALBUTEROL [Concomitant]
  4. PRISTIQ [Concomitant]
  5. SIMVASTATIN [Concomitant]
  6. MULTI-VITAMIN [Concomitant]
  7. ATIVAN [Concomitant]
  8. GLUCOPHAGE [Concomitant]
  9. RITALIN [Concomitant]
  10. FAZACLO ODT [Suspect]
     Indication: BIPOLAR DISORDER
     Dosage: 400MG DAILY PO
     Route: 048
     Dates: start: 20080714
  11. PRILOSEC [Concomitant]
  12. LUNESTA [Concomitant]

REACTIONS (1)
  - VOMITING [None]
